FAERS Safety Report 5142876-9 (Version None)
Quarter: 2006Q4

REPORT INFORMATION
  Report Type: 
  Country: None (occurrence: None)
  Receive Date: 20061030
  Receipt Date: 20061020
  Transmission Date: 20070319
  Serious: Yes (Hospitalization)
  Sender: FDA-Public Use
  Company Number: L06-GER-03373-01

PATIENT
  Age: 79 Year
  Sex: Male

DRUGS (11)
  1. MEMANTINE HCL [Suspect]
     Indication: DEMENTIA
     Dosage: 10 MG QD PO
     Route: 048
  2. MEMANTINE HCL [Suspect]
     Indication: DEMENTIA
  3. REMINYL /UNK/ (GALANTAMINE) [Suspect]
     Indication: DEMENTIA
     Dosage: 8 MG QD
  4. REMINYL /UNK/ (GALANTAMINE) [Suspect]
     Indication: DEMENTIA
  5. DOMINAL (PROTHIPENDYL) [Suspect]
     Indication: AGITATION
     Dosage: 20 MG
  6. DOMINAL (PROTHIPENDYL) [Suspect]
     Indication: SLEEP DISORDER
     Dosage: 20 MG
  7. GLUCOBAY [Concomitant]
  8. PRAVASTATIN SODIUM [Concomitant]
  9. METOPROLOL TARTRATE [Concomitant]
  10. CAPTOGAMMA (CAPTOPRIL) [Concomitant]
  11. ACETYLSALICYLIC ACID SRT [Concomitant]

REACTIONS (5)
  - AGITATION [None]
  - FALL [None]
  - PLEUROTHOTONUS [None]
  - RESTLESSNESS [None]
  - SLEEP DISORDER [None]
